FAERS Safety Report 20328866 (Version 1)
Quarter: 2022Q1

REPORT INFORMATION
  Report Type: Spontaneous
  Country: US (occurrence: None)
  Receive Date: 20220112
  Receipt Date: 20220112
  Transmission Date: 20220423
  Serious: No
  Sender: FDA-Public Use
  Company Number: None

PATIENT
  Sex: Male
  Weight: 20.25 kg

DRUGS (2)
  1. MONTELUKAST SODIUM [Suspect]
     Active Substance: MONTELUKAST SODIUM
     Indication: Multiple allergies
     Dosage: OTHER QUANTITY : 90 TABLET(S);?FREQUENCY : DAILY;?
     Route: 048
     Dates: start: 20180101, end: 20211208
  2. MONTELUKAST SODIUM [Suspect]
     Active Substance: MONTELUKAST SODIUM
     Indication: Asthma

REACTIONS (17)
  - Abnormal behaviour [None]
  - Restlessness [None]
  - Sleep disorder [None]
  - Aggression [None]
  - Sensory disturbance [None]
  - Educational problem [None]
  - Disease progression [None]
  - Agitation [None]
  - Disturbance in attention [None]
  - Abnormal dreams [None]
  - Anxiety [None]
  - Irritability [None]
  - Dysphonia [None]
  - Somnambulism [None]
  - Pollakiuria [None]
  - Withdrawal syndrome [None]
  - Product use issue [None]
